APPROVED DRUG PRODUCT: FLUOCINONIDE
Active Ingredient: FLUOCINONIDE
Strength: 0.05%
Dosage Form/Route: GEL;TOPICAL
Application: A074935 | Product #001 | TE Code: AB
Applicant: SUN PHARMA CANADA INC
Approved: Jul 29, 1997 | RLD: No | RS: Yes | Type: RX